FAERS Safety Report 11326435 (Version 1)
Quarter: 2015Q3

REPORT INFORMATION
  Report Type: Spontaneous
  Country: GB (occurrence: GB)
  Receive Date: 20150731
  Receipt Date: 20150731
  Transmission Date: 20151125
  Serious: Yes (Disabling, Other)
  Sender: FDA-Public Use
  Company Number: GB-ABBVIE-15P-167-1435853-00

PATIENT
  Age: 30 Year
  Sex: Female

DRUGS (3)
  1. CARBAMAZEPINE. [Suspect]
     Active Substance: CARBAMAZEPINE
     Indication: EPILEPSY
     Dosage: UNKNOWN FREQUENCY
     Route: 048
     Dates: start: 19810831, end: 20120201
  2. EPILIM [Suspect]
     Active Substance: VALPROATE SODIUM
     Indication: EPILEPSY
     Route: 048
     Dates: start: 19810831, end: 20120201
  3. ETHOSUXIMIDE. [Suspect]
     Active Substance: ETHOSUXIMIDE
     Indication: EPILEPSY
     Dosage: FREQUENCY UNKNOWN
     Route: 048
     Dates: start: 19810831, end: 20120201

REACTIONS (13)
  - Dysstasia [Unknown]
  - Exposure during pregnancy [Unknown]
  - Abortion spontaneous [Unknown]
  - Amenorrhoea [Unknown]
  - Endometriosis [Unknown]
  - Migraine [Unknown]
  - Pain [Unknown]
  - Asthma [Recovered/Resolved with Sequelae]
  - Irritable bowel syndrome [Recovering/Resolving]
  - Epilepsy [Not Recovered/Not Resolved]
  - Polycystic ovaries [Not Recovered/Not Resolved]
  - Menorrhagia [Unknown]
  - Chronic fatigue syndrome [Recovered/Resolved with Sequelae]

NARRATIVE: CASE EVENT DATE: 1998
